FAERS Safety Report 5413251-4 (Version None)
Quarter: 2007Q3

REPORT INFORMATION
  Report Type: 
  Country: None (occurrence: None)
  Receive Date: 20070814
  Receipt Date: 20061019
  Transmission Date: 20080115
  Serious: No
  Sender: FDA-Public Use
  Company Number: US-KINGPHARMUSA00001-K200601334

PATIENT

DRUGS (1)
  1. DELESTROGEN [Suspect]

REACTIONS (1)
  - HAEMORRHAGE [None]
